FAERS Safety Report 7607072-1 (Version None)
Quarter: 2011Q3

REPORT INFORMATION
  Report Type: 
  Country: None (occurrence: None)
  Receive Date: 20110713
  Receipt Date: 20110713
  Transmission Date: 20111222
  Serious: Yes (Other)
  Sender: FDA-Public Use
  Company Number: AT-ABBOTT-11P-009-0837313-00

PATIENT
  Sex: Female

DRUGS (2)
  1. HUMIRA [Suspect]
     Indication: SPONDYLITIS
     Route: 058
     Dates: start: 20101201
  2. ESCITALOPRAM [Concomitant]
     Indication: PRODUCT USED FOR UNKNOWN INDICATION
     Dates: start: 20110601

REACTIONS (7)
  - NAUSEA [None]
  - RESPIRATORY DISORDER [None]
  - FEELING HOT [None]
  - TACHYCARDIA [None]
  - INJECTION SITE ERYTHEMA [None]
  - DYSGEUSIA [None]
  - ANXIETY [None]
